FAERS Safety Report 8922994 (Version 3)
Quarter: 2013Q2

REPORT INFORMATION
  Report Type: Spontaneous
  Country: DE (occurrence: DE)
  Receive Date: 20121123
  Receipt Date: 20130408
  Transmission Date: 20140414
  Serious: Yes (Hospitalization, Other)
  Sender: FDA-Public Use
  Company Number: DE-JNJFOC-20121109173

PATIENT
  Sex: Male

DRUGS (2)
  1. REGAINE [Suspect]
     Route: 061
  2. REGAINE [Suspect]
     Indication: ALOPECIA
     Route: 061

REACTIONS (2)
  - Oedema mucosal [Unknown]
  - Rash [Unknown]
